FAERS Safety Report 4893989-8 (Version None)
Quarter: 2006Q1

REPORT INFORMATION
  Report Type: 
  Country: None (occurrence: None)
  Receive Date: 20060127
  Receipt Date: 20050412
  Transmission Date: 20060701
  Serious: No
  Sender: FDA-Public Use
  Company Number: US-GLAXOSMITHKLINE-A0553778A

PATIENT
  Age: 46 Year
  Sex: Female

DRUGS (9)
  1. BUPROPION HYDROCHLORIDE [Suspect]
     Indication: DEPRESSION
     Dosage: 100MG THREE TIMES PER DAY
     Route: 048
  2. PAXIL [Suspect]
     Indication: DEPRESSION
     Route: 048
  3. BENICAR [Concomitant]
  4. XANAX [Concomitant]
  5. PROTONIX [Concomitant]
  6. SONATA [Concomitant]
  7. MOBIC [Concomitant]
  8. SOMA [Concomitant]
  9. AMITRIPTYLINE HCL [Concomitant]

REACTIONS (4)
  - ANXIETY [None]
  - IRRITABILITY [None]
  - NIGHTMARE [None]
  - WEIGHT INCREASED [None]
